FAERS Safety Report 8531715-1 (Version None)
Quarter: 2012Q3

REPORT INFORMATION
  Report Type: 
  Country: None (occurrence: None)
  Receive Date: 20120723
  Receipt Date: 20120717
  Transmission Date: 20120928
  Serious: Yes (Life-Threatening, Disabling, Other)
  Sender: FDA-Public Use
  Company Number: GB-PFIZER INC-2012171769

PATIENT
  Age: 79 Year
  Sex: Female
  Weight: 50 kg

DRUGS (2)
  1. XALATAN [Suspect]
     Indication: GLAUCOMA
     Dosage: UNK
     Route: 047
     Dates: start: 20090101, end: 20110501
  2. AZOPT [Concomitant]
     Indication: GLAUCOMA
     Dosage: 1 DF, 2X/DAY
     Route: 050
     Dates: end: 20100601

REACTIONS (1)
  - PALPITATIONS [None]
